FAERS Safety Report 13659778 (Version 2)
Quarter: 2017Q4

REPORT INFORMATION
  Report Type: Spontaneous
  Country: US (occurrence: US)
  Receive Date: 20170616
  Receipt Date: 20171210
  Transmission Date: 20180320
  Serious: No
  Sender: FDA-Public Use
  Company Number: US-ASTRAZENECA-2017SE60480

PATIENT
  Sex: Female
  Weight: 54.4 kg

DRUGS (1)
  1. TUDORZA PRESSAIR [Suspect]
     Active Substance: ACLIDINIUM BROMIDE
     Indication: EMPHYSEMA
     Route: 055
     Dates: start: 2016

REACTIONS (4)
  - Fatigue [Unknown]
  - Intentional product misuse [Recovered/Resolved]
  - Device failure [Unknown]
  - Product label issue [Unknown]
